FAERS Safety Report 6242360-5 (Version None)
Quarter: 2009Q2

REPORT INFORMATION
  Report Type: 
  Country: None (occurrence: None)
  Receive Date: 20090623
  Receipt Date: 20090623
  Transmission Date: 20091009
  Serious: Yes (Life-Threatening, Hospitalization, Other)
  Sender: FDA-Public Use
  Company Number: None

PATIENT
  Age: 22 Year
  Sex: Male
  Weight: 68.0396 kg

DRUGS (4)
  1. VENTOLIN [Suspect]
  2. PROAIR HFA [Suspect]
  3. PROVENTIL-HFA [Suspect]
  4. . [Concomitant]

REACTIONS (1)
  - DRUG INEFFECTIVE [None]
